FAERS Safety Report 22258389 (Version 1)
Quarter: 2023Q2

REPORT INFORMATION
  Report Type: Spontaneous
  Country: US (occurrence: None)
  Receive Date: 20230425
  Receipt Date: 20230425
  Transmission Date: 20230722
  Serious: No
  Sender: FDA-Public Use
  Company Number: None

PATIENT
  Sex: Male

DRUGS (1)
  1. ENBREL [Suspect]
     Active Substance: ETANERCEPT
     Indication: Ankylosing spondylitis
     Dosage: OTHER FREQUENCY : EVERY7DAYS;?
     Route: 042
     Dates: start: 20230410

REACTIONS (5)
  - Fatigue [None]
  - Peripheral swelling [None]
  - Pain in extremity [None]
  - Grip strength decreased [None]
  - Therapeutic product effect decreased [None]
